FAERS Safety Report 9180994 (Version 2)
Quarter: 2013Q2

REPORT INFORMATION
  Report Type: Spontaneous
  Country: GB (occurrence: GB)
  Receive Date: 20130322
  Receipt Date: 20130409
  Transmission Date: 20140414
  Serious: Yes (Death, Hospitalization)
  Sender: FDA-Public Use
  Company Number: PHFR2013GB001830

PATIENT
  Age: 48 Year
  Sex: Female
  Weight: 57 kg

DRUGS (7)
  1. EVEROLIMUS [Suspect]
     Indication: BREAST CANCER METASTATIC
     Dosage: UNK
     Dates: start: 20130123
  2. LANSOPRAZOLE [Concomitant]
     Indication: GASTRITIS
     Dosage: 30 MG, BID
     Route: 048
  3. PARACETAMOL [Concomitant]
     Indication: PAIN
     Dosage: UNK
  4. CO-DANTHRUSATE [Concomitant]
     Indication: CONSTIPATION
     Dosage: UNK
     Route: 048
  5. EXEMESTANE [Concomitant]
     Indication: BREAST CANCER
     Dosage: 25 MG, UNK
  6. VENLAFAXINE [Concomitant]
     Indication: HOT FLUSH
     Dosage: 37.5 MG, UNK
  7. NSAID^S [Concomitant]

REACTIONS (8)
  - Death [Fatal]
  - Ascites [Not Recovered/Not Resolved]
  - Abdominal distension [Not Recovered/Not Resolved]
  - Gastric haemorrhage [Unknown]
  - Melaena [Not Recovered/Not Resolved]
  - Anaemia [Not Recovered/Not Resolved]
  - Gastritis [Unknown]
  - Hepatic pain [Unknown]
